FAERS Safety Report 17582073 (Version 1)
Quarter: 2020Q1

REPORT INFORMATION
  Report Type: Spontaneous
  Country: US (occurrence: US)
  Receive Date: 20200325
  Receipt Date: 20200325
  Transmission Date: 20200409
  Serious: Yes (Hospitalization)
  Sender: FDA-Public Use
  Company Number: US-BRISTOL-MYERS SQUIBB COMPANY-BMS-2020-022953

PATIENT
  Sex: Male

DRUGS (1)
  1. SPRYCEL [Suspect]
     Active Substance: DASATINIB
     Indication: AGRANULOCYTOSIS
     Dosage: 100 MG DAILY
     Route: 048
     Dates: start: 20190224

REACTIONS (2)
  - Hospitalisation [Unknown]
  - Intentional product use issue [Unknown]
